FAERS Safety Report 21706223 (Version 1)
Quarter: 2022Q4

REPORT INFORMATION
  Report Type: Report from Study
  Country: FR (occurrence: None)
  Receive Date: 20221209
  Receipt Date: 20221209
  Transmission Date: 20230113
  Serious: Yes (Other)
  Sender: FDA-Public Use
  Company Number: 2022A398670

PATIENT
  Age: 871 Month
  Sex: Male
  Weight: 100 kg

DRUGS (2)
  1. EVUSHELD [Suspect]
     Active Substance: CILGAVIMAB\TIXAGEVIMAB
     Indication: COVID-19 prophylaxis
     Dosage: ONCE/SINGLE ADMINISTRATION
     Route: 030
     Dates: start: 20220209
  2. CELLCEPT [Concomitant]
     Active Substance: MYCOPHENOLATE MOFETIL
     Indication: Immunosuppressant drug therapy

REACTIONS (1)
  - COVID-19 [Unknown]

NARRATIVE: CASE EVENT DATE: 20220901
